FAERS Safety Report 6395926-6 (Version None)
Quarter: 2009Q4

REPORT INFORMATION
  Report Type: 
  Country: None (occurrence: None)
  Receive Date: 20091009
  Receipt Date: 20090908
  Transmission Date: 20100525
  Serious: No
  Sender: FDA-Public Use
  Company Number: A0806360A

PATIENT
  Age: 83 Year
  Sex: Female

DRUGS (8)
  1. TYKERB [Suspect]
     Indication: BREAST CANCER
     Dosage: 1250MG PER DAY
     Route: 048
     Dates: start: 20090601
  2. IMODIUM [Concomitant]
  3. WARFARIN SODIUM [Concomitant]
  4. POTASSIUM CHLORIDE [Concomitant]
  5. LOTENSIN [Concomitant]
  6. DEMADEX [Concomitant]
  7. NITROGLYCERIN [Concomitant]
  8. XELODA [Concomitant]

REACTIONS (2)
  - DIARRHOEA [None]
  - NAUSEA [None]
